FAERS Safety Report 10143233 (Version 2)
Quarter: 2014Q2

REPORT INFORMATION
  Report Type: Spontaneous
  Country: JP (occurrence: JP)
  Receive Date: 20140430
  Receipt Date: 20140430
  Transmission Date: 20141212
  Serious: Yes (Hospitalization)
  Sender: FDA-Public Use
  Company Number: JP-B.I. PHARMACEUTICALS,INC./RIDGEFIELD-2013-BI-39632NB

PATIENT
  Age: 75 Year
  Sex: Female

DRUGS (3)
  1. PRAZAXA [Suspect]
     Indication: PRODUCT USED FOR UNKNOWN INDICATION
     Dosage: 110 MG
     Route: 065
  2. PRAZAXA [Suspect]
     Dosage: 110 MG
     Route: 065
     Dates: start: 2014
  3. FERROMIA / SODIUM FERROUS CITRATE [Concomitant]
     Route: 065
     Dates: start: 2014

REACTIONS (6)
  - Femur fracture [Unknown]
  - Fall [Unknown]
  - Haemorrhage subcutaneous [Unknown]
  - Swelling face [Unknown]
  - Back pain [Unknown]
  - Anaemia [Unknown]
